FAERS Safety Report 24640446 (Version 1)
Quarter: 2024Q4

REPORT INFORMATION
  Report Type: Spontaneous
  Country: US (occurrence: US)
  Receive Date: 20241120
  Receipt Date: 20241120
  Transmission Date: 20250115
  Serious: Yes (Other)
  Sender: ABBVIE
  Company Number: US-ABBVIE-6003498

PATIENT
  Sex: Female

DRUGS (1)
  1. REFRESH RELIEVA [Suspect]
     Active Substance: CARBOXYMETHYLCELLULOSE SODIUM\GLYCERIN
     Indication: Product used for unknown indication
     Dosage: FREQUENCY: 3-4 TIMES A DAY
     Route: 047
     Dates: start: 2024

REACTIONS (2)
  - Cataract [Unknown]
  - Xanthopsia [Unknown]

NARRATIVE: CASE EVENT DATE: 20240101
